FAERS Safety Report 17807142 (Version 1)
Quarter: 2020Q2

REPORT INFORMATION
  Report Type: Spontaneous
  Country: CZ (occurrence: CZ)
  Receive Date: 20200520
  Receipt Date: 20200520
  Transmission Date: 20200714
  Serious: Yes (Other)
  Sender: FDA-Public Use
  Company Number: CZ-MYLANLABS-2020M1048487

PATIENT
  Age: 71 Year
  Sex: Female

DRUGS (5)
  1. NEURITOGEN [Suspect]
     Active Substance: DIETARY SUPPLEMENT\HERBALS
     Indication: NEUROPATHY PERIPHERAL
     Dosage: 1-0-1
     Route: 065
  2. PACLITAXEL. [Suspect]
     Active Substance: PACLITAXEL
     Indication: OVARIAN CANCER
     Dosage: 80 MG/M2 ON DAY 1,8,15 AND 22
     Route: 065
  3. GABAPENTIN. [Suspect]
     Active Substance: GABAPENTIN
     Indication: NEUROPATHY PERIPHERAL
     Dosage: 300 TABLETS 1-1-1
     Route: 065
  4. INSULIN [Concomitant]
     Active Substance: INSULIN NOS
     Indication: TYPE 2 DIABETES MELLITUS
     Dosage: UNK
     Route: 065
  5. BEVACIZUMAB. [Suspect]
     Active Substance: BEVACIZUMAB
     Indication: OVARIAN CANCER
     Dosage: 10 MG/KG
     Route: 065

REACTIONS (3)
  - Drug intolerance [Unknown]
  - Disease progression [Unknown]
  - Neuropathy peripheral [Unknown]
